FAERS Safety Report 6897020-4 (Version None)
Quarter: 2010Q3

REPORT INFORMATION
  Report Type: 
  Country: None (occurrence: None)
  Receive Date: 20100802
  Receipt Date: 20070504
  Transmission Date: 20110219
  Serious: Yes (Other)
  Sender: FDA-Public Use
  Company Number: US-PFIZER INC-2007020504

PATIENT
  Sex: Female

DRUGS (2)
  1. LYRICA [Suspect]
     Indication: PAIN
     Route: 048
     Dates: start: 20060621
  2. LYRICA [Suspect]
     Indication: SACROILIITIS

REACTIONS (2)
  - INCREASED APPETITE [None]
  - WEIGHT INCREASED [None]
